FAERS Safety Report 9502910 (Version 1)
Quarter: 2013Q3

REPORT INFORMATION
  Report Type: Spontaneous
  Country: JP (occurrence: JP)
  Receive Date: 20130906
  Receipt Date: 20130906
  Transmission Date: 20140515
  Serious: Yes (Other)
  Sender: FDA-Public Use
  Company Number: PHHY2013JP097440

PATIENT
  Sex: Female

DRUGS (1)
  1. VOLTAREN [Suspect]
     Indication: RHEUMATIC DISORDER
     Route: 048
     Dates: start: 2007

REACTIONS (3)
  - Gastric ulcer [Unknown]
  - Haematemesis [Unknown]
  - Drug abuse [Unknown]
